FAERS Safety Report 14941309 (Version 1)
Quarter: 2018Q2

REPORT INFORMATION
  Report Type: Spontaneous
  Country: FR (occurrence: FR)
  Receive Date: 20180526
  Receipt Date: 20180526
  Transmission Date: 20180711
  Serious: Yes (Hospitalization)
  Sender: FDA-Public Use
  Company Number: FR-TEVA-2018-FR-897794

PATIENT
  Age: 81 Year
  Sex: Male
  Weight: 67.8 kg

DRUGS (5)
  1. FINASTERIDE. [Concomitant]
     Active Substance: FINASTERIDE
     Dosage: .5 MILLIGRAM DAILY;
     Route: 048
  2. SPECIAFOLDINE 5 MG, COMPRIM? [Concomitant]
     Active Substance: FOLIC ACID
     Dosage: 1 DOSAGE FORMS DAILY;
     Route: 048
  3. CIPROFLOXACINE [Suspect]
     Active Substance: CIPROFLOXACIN
     Dosage: 500 MILLIGRAM DAILY;
     Route: 048
     Dates: start: 20180113, end: 20180126
  4. ALFUZOSINE (CHLORHYDRATE D^) [Concomitant]
     Dosage: 10 MILLIGRAM DAILY;
     Route: 048
  5. EUPANTOL 40 MG, COMPRIM? GASTRO-R?SISTANT [Concomitant]
     Dosage: 1 DOSAGE FORMS DAILY;
     Route: 048

REACTIONS (1)
  - Febrile neutropenia [Recovered/Resolved]

NARRATIVE: CASE EVENT DATE: 20180123
